FAERS Safety Report 4798287-9 (Version None)
Quarter: 2005Q4

REPORT INFORMATION
  Report Type: 
  Country: None (occurrence: None)
  Receive Date: 20051006
  Receipt Date: 20051006
  Transmission Date: 20060501
  Serious: Yes (Hospitalization)
  Sender: FDA-Public Use
  Company Number: None

PATIENT
  Age: 17 Year
  Sex: Male
  Weight: 98 kg

DRUGS (4)
  1. WARFARIN [Suspect]
     Indication: PULMONARY EMBOLISM
     Dosage: 7.5MG PO QD
     Route: 048
  2. ATENOLOL [Concomitant]
  3. GUAIFENESIN [Concomitant]
  4. LEVOFLOXACIN [Concomitant]

REACTIONS (4)
  - ARTHRALGIA [None]
  - COUGH [None]
  - DEEP VEIN THROMBOSIS [None]
  - INTERNATIONAL NORMALISED RATIO DECREASED [None]
